FAERS Safety Report 6431597-8 (Version None)
Quarter: 2009Q4

REPORT INFORMATION
  Report Type: 
  Country: None (occurrence: None)
  Receive Date: 20091106
  Receipt Date: 20091027
  Transmission Date: 20100525
  Serious: Yes (Hospitalization)
  Sender: FDA-Public Use
  Company Number: DE-AMGEN-US372394

PATIENT
  Age: 62 Year
  Sex: Female

DRUGS (7)
  1. ENBREL [Suspect]
     Indication: RHEUMATOID ARTHRITIS
     Route: 058
     Dates: start: 20081020
  2. ARCOXIA [Concomitant]
     Route: 048
  3. GLUCOCORTICOIDS [Concomitant]
     Route: 048
  4. TILIDINE [Concomitant]
     Route: 048
  5. PARACETAMOL [Concomitant]
     Route: 048
  6. ARAVA [Concomitant]
     Route: 048
  7. OMEPRAZOLE [Concomitant]
     Route: 048

REACTIONS (2)
  - CARDIAC DISORDER [None]
  - DYSPNOEA [None]
